FAERS Safety Report 5303286-4 (Version None)
Quarter: 2007Q2

REPORT INFORMATION
  Report Type: 
  Country: None (occurrence: None)
  Receive Date: 20070420
  Receipt Date: 20070411
  Transmission Date: 20071010
  Serious: Yes (Other)
  Sender: FDA-Public Use
  Company Number: FR-GLAXOSMITHKLINE-B0420221A

PATIENT
  Age: 56 Year
  Sex: Female
  Weight: 50 kg

DRUGS (5)
  1. REQUIP [Suspect]
     Indication: PARKINSON'S DISEASE
     Route: 048
     Dates: start: 20051001
  2. ESTREVA [Concomitant]
     Indication: HORMONE REPLACEMENT THERAPY
     Route: 061
     Dates: start: 19990101
  3. FOSAMAX [Concomitant]
     Indication: OSTEOPOROSIS
     Dosage: 1TAB WEEKLY
     Route: 048
     Dates: start: 20030101
  4. PROGESTERONE [Concomitant]
     Indication: HORMONE REPLACEMENT THERAPY
     Dosage: 200MG CYCLIC
     Route: 048
     Dates: start: 19990101
  5. ESTROGENS SOL/INJ [Concomitant]
     Indication: HORMONE REPLACEMENT THERAPY
     Route: 048

REACTIONS (8)
  - ABDOMINAL DISTENSION [None]
  - ALANINE AMINOTRANSFERASE INCREASED [None]
  - ASPARTATE AMINOTRANSFERASE INCREASED [None]
  - INSOMNIA [None]
  - NAUSEA [None]
  - SOMNOLENCE [None]
  - SUDDEN ONSET OF SLEEP [None]
  - YAWNING [None]
